FAERS Safety Report 12922495 (Version 1)
Quarter: 2016Q4

REPORT INFORMATION
  Report Type: Spontaneous
  Country: US (occurrence: US)
  Receive Date: 20161108
  Receipt Date: 20161108
  Transmission Date: 20170207
  Serious: Yes (Hospitalization)
  Sender: FDA-Public Use
  Company Number: None

PATIENT
  Age: 60 Year
  Sex: Male
  Weight: 100 kg

DRUGS (3)
  1. METHOTREXATE. [Suspect]
     Active Substance: METHOTREXATE
     Dates: end: 20161020
  2. MERCAPTOPURINE. [Suspect]
     Active Substance: MERCAPTOPURINE
     Dates: end: 20161027
  3. VINCRISTINE SULFATE. [Suspect]
     Active Substance: VINCRISTINE SULFATE
     Dates: end: 20161020

REACTIONS (12)
  - Fatigue [None]
  - Leukocytosis [None]
  - Blood lactic acid increased [None]
  - White blood cell count decreased [None]
  - Malaise [None]
  - Tachycardia [None]
  - Neuropathy peripheral [None]
  - Upper respiratory tract congestion [None]
  - Pyrexia [None]
  - Cough [None]
  - Human rhinovirus test positive [None]
  - Hypersomnia [None]

NARRATIVE: CASE EVENT DATE: 20161101
